FAERS Safety Report 18817533 (Version 1)
Quarter: 2021Q1

REPORT INFORMATION
  Report Type: Report from Study
  Country: CA (occurrence: CA)
  Receive Date: 20210201
  Receipt Date: 20210201
  Transmission Date: 20210419
  Serious: Yes (Other)
  Sender: FDA-Public Use
  Company Number: CA-AMGEN-CANSL2021007900

PATIENT
  Age: 78 Year
  Sex: Female

DRUGS (5)
  1. MAGNESIUM [Concomitant]
     Active Substance: MAGNESIUM
  2. NAPROXEN. [Concomitant]
     Active Substance: NAPROXEN
     Indication: FIBULA FRACTURE
     Dosage: 370 MILLIGRAM
  3. CALCIUM [Concomitant]
     Active Substance: CALCIUM
  4. NAPROXEN. [Concomitant]
     Active Substance: NAPROXEN
     Indication: MUSCLE SPASMS
  5. PROLIA [Suspect]
     Active Substance: DENOSUMAB
     Indication: OSTEOPOROSIS POSTMENOPAUSAL
     Dosage: 60 MILLIGRAM PER MILLILITRE
     Route: 065
     Dates: start: 201505

REACTIONS (2)
  - Muscle spasms [Not Recovered/Not Resolved]
  - Fibula fracture [Unknown]

NARRATIVE: CASE EVENT DATE: 20201213
